FAERS Safety Report 4596293-0 (Version None)
Quarter: 2005Q1

REPORT INFORMATION
  Report Type: 
  Country: None (occurrence: None)
  Receive Date: 20050228
  Receipt Date: 20050221
  Transmission Date: 20050727
  Serious: Yes (Hospitalization, Other)
  Sender: FDA-Public Use
  Company Number: DEWYE443821FEB05

PATIENT
  Age: 34 Year
  Sex: Female

DRUGS (5)
  1. VENLAFAXINE HCL [Suspect]
     Indication: DEPRESSION
     Dosage: SEE IMAGE
     Route: 048
     Dates: start: 20031120, end: 20031130
  2. VENLAFAXINE HCL [Suspect]
     Indication: DEPRESSION
     Dosage: SEE IMAGE
     Route: 048
     Dates: start: 20031201, end: 20031215
  3. CITALOPRAM HYDROBROMIDE [Suspect]
     Dosage: 10 MG ORAL
     Route: 048
     Dates: start: 20031224, end: 20040112
  4. LEVOTHYROXINE SODIUM [Concomitant]
  5. PRIMOLUT (NORETHISTERONE) [Concomitant]

REACTIONS (6)
  - AKATHISIA [None]
  - CHEST DISCOMFORT [None]
  - DRUG INTERACTION [None]
  - PAIN IN EXTREMITY [None]
  - SLEEP DISORDER [None]
  - TENSION [None]
